FAERS Safety Report 15561534 (Version 2)
Quarter: 2019Q3

REPORT INFORMATION
  Report Type: Spontaneous
  Country: JP (occurrence: JP)
  Receive Date: 20181029
  Receipt Date: 20190822
  Transmission Date: 20191004
  Serious: Yes (Death, Hospitalization, Other)
  Sender: FDA-Public Use
  Company Number: JP-TEVA-2018-JP-967701

PATIENT
  Age: 57 Year
  Sex: Female

DRUGS (17)
  1. BENDAMUSTINE HYDROCHLORIDE. [Suspect]
     Active Substance: BENDAMUSTINE HYDROCHLORIDE
     Indication: B-CELL LYMPHOMA
     Route: 041
     Dates: start: 20180927, end: 20180928
  2. FLUCONAZOLE. [Concomitant]
     Active Substance: FLUCONAZOLE
     Indication: INFECTION PROPHYLAXIS
     Route: 048
     Dates: start: 20180926, end: 20181005
  3. FLUDARABINE [Suspect]
     Active Substance: FLUDARABINE PHOSPHATE
     Indication: B-CELL LYMPHOMA
     Route: 041
     Dates: start: 20180927, end: 20181001
  4. LUBIPROSTONE [Concomitant]
     Active Substance: LUBIPROSTONE
     Indication: BOWEL MOVEMENT IRREGULARITY
     Route: 048
     Dates: start: 20180910, end: 20181005
  5. LANSOPRAZOLE. [Concomitant]
     Active Substance: LANSOPRAZOLE
     Indication: MUCOSAL DISORDER
     Route: 048
     Dates: start: 20180910
  6. LEVOFLOXACIN HEMIHYDRATE [Concomitant]
     Active Substance: LEVOFLOXACIN
     Indication: INFECTION PROPHYLAXIS
     Route: 048
     Dates: start: 20180926, end: 20181005
  7. ACICLOVIR [Concomitant]
     Active Substance: ACYCLOVIR
     Indication: INFECTION PROPHYLAXIS
     Route: 048
     Dates: start: 20180926, end: 20181005
  8. MECOBALAMIN [Concomitant]
     Active Substance: METHYLCOBALAMIN
     Indication: PROPHYLAXIS
     Route: 048
     Dates: start: 20180910, end: 20181005
  9. APREPITANT. [Concomitant]
     Active Substance: APREPITANT
     Indication: NAUSEA
     Route: 048
     Dates: start: 20180927
  10. APREPITANT. [Concomitant]
     Active Substance: APREPITANT
     Route: 048
     Dates: start: 20180928, end: 20180929
  11. HANGESHASHINTO [Concomitant]
     Active Substance: HERBALS
     Indication: MUCOSAL DISORDER
     Dosage: 3PACKS, ONCE DAILY
     Route: 048
     Dates: start: 20180929, end: 20181005
  12. CYCLOPHOSPHAMIDE. [Suspect]
     Active Substance: CYCLOPHOSPHAMIDE
     Indication: B-CELL LYMPHOMA
     Route: 041
     Dates: start: 20180929, end: 20181001
  13. SULFAMETHOXAZOLE AND TRIMETHOPRIM [Concomitant]
     Active Substance: SULFAMETHOXAZOLE\TRIMETHOPRIM
     Indication: PROPHYLAXIS
     Dosage: 2 DF, ONCE DAILY FOR 2 WEEKS
     Route: 048
     Dates: start: 20180910, end: 20180925
  14. BUTYRIC ACID [Concomitant]
     Active Substance: BUTYRIC ACID
     Indication: BOWEL MOVEMENT IRREGULARITY
     Route: 048
     Dates: start: 20180930, end: 20181005
  15. URSODEOXYCHOLIC ACID [Concomitant]
     Active Substance: URSODIOL
     Indication: PROPHYLAXIS
     Route: 048
     Dates: start: 20180926, end: 20181005
  16. LACTOBACILLUS CASEI [Concomitant]
     Active Substance: LACTOBACILLUS CASEI
     Indication: BOWEL MOVEMENT IRREGULARITY
     Dosage: 3PACKS, ONCE DAILY
     Route: 048
     Dates: start: 20180926, end: 20180929
  17. OLANZAPINE. [Concomitant]
     Active Substance: OLANZAPINE
     Indication: NAUSEA
     Route: 048
     Dates: start: 20180926, end: 20181005

REACTIONS (2)
  - Laryngeal oedema [Recovering/Resolving]
  - Sepsis [Fatal]

NARRATIVE: CASE EVENT DATE: 20181005
